FAERS Safety Report 6818586-6 (Version None)
Quarter: 2010Q3

REPORT INFORMATION
  Report Type: 
  Country: None (occurrence: None)
  Receive Date: 20100706
  Receipt Date: 20090427
  Transmission Date: 20110219
  Serious: No
  Sender: FDA-Public Use
  Company Number: US-PFIZER INC-2009164504

PATIENT
  Sex: Male
  Weight: 86.2 kg

DRUGS (4)
  1. AZITHROMYCIN [Suspect]
     Indication: LUNG INFECTION
     Dosage: 1 TABLET DAILY
     Route: 048
     Dates: start: 20090123
  2. ZOCOR [Concomitant]
     Dates: start: 20090102, end: 20090119
  3. LOTREL [Concomitant]
     Indication: HYPERTENSION
     Dates: end: 20090119
  4. TRICOR [Concomitant]
     Indication: BLOOD TRIGLYCERIDES INCREASED
     Dates: end: 20090119

REACTIONS (1)
  - PYREXIA [None]
